FAERS Safety Report 12053008 (Version 2)
Quarter: 2016Q1

REPORT INFORMATION
  Report Type: Spontaneous
  Country: JP (occurrence: JP)
  Receive Date: 20160209
  Receipt Date: 20160219
  Transmission Date: 20160526
  Serious: Yes (Other)
  Sender: FDA-Public Use
  Company Number: JP-009507513-1602JPN004257

PATIENT
  Age: 82 Year
  Sex: Male

DRUGS (2)
  1. REBETOL [Suspect]
     Active Substance: RIBAVIRIN
     Dosage: 600MG, DAILY
     Route: 048
     Dates: start: 20160105
  2. SOVALDI [Suspect]
     Active Substance: SOFOSBUVIR
     Dosage: TOTAL DAILY DOSE 400MG, DIVIDED DOSE WAS UNKNOWN
     Route: 048
     Dates: start: 20160105

REACTIONS (2)
  - Dysarthria [Recovered/Resolved]
  - Cerebrovascular accident [Unknown]

NARRATIVE: CASE EVENT DATE: 201602
